FAERS Safety Report 9185100 (Version 1)
Quarter: 2012Q4

REPORT INFORMATION
  Report Type: 
  Country: US (occurrence: US)
  Receive Date: 20121101
  Receipt Date: 20121101
  Transmission Date: 20130627
  Serious: Yes (Other)
  Sender: FDA-Public Use
  Company Number: US-ELI_LILLY_AND_COMPANY-US201210009203

PATIENT
  Age: 33 Year
  Sex: Male

DRUGS (1)
  1. CIALIS [Suspect]
     Indication: BENIGN PROSTATIC HYPERPLASIA
     Dosage: 2.5 mg, unknown
     Dates: end: 201210

REACTIONS (3)
  - Electrocardiogram ST segment elevation [Unknown]
  - Dizziness [Unknown]
  - Wrong technique in drug usage process [Unknown]
